FAERS Safety Report 5301321-0 (Version None)
Quarter: 2007Q2

REPORT INFORMATION
  Report Type: 
  Country: None (occurrence: None)
  Receive Date: 20070418
  Receipt Date: 20070406
  Transmission Date: 20071010
  Serious: Yes (Disabling, Other)
  Sender: FDA-Public Use
  Company Number: US-PFIZER INC-2007028903

PATIENT
  Sex: Female
  Weight: 90.7 kg

DRUGS (2)
  1. LIPITOR [Suspect]
     Indication: BLOOD CHOLESTEROL INCREASED
  2. ALTACE [Concomitant]

REACTIONS (13)
  - ABASIA [None]
  - ANEURYSM [None]
  - BENIGN RENAL NEOPLASM [None]
  - BLOOD URINE PRESENT [None]
  - CARDIOMEGALY [None]
  - DIABETES MELLITUS [None]
  - DIZZINESS [None]
  - HEART RATE ABNORMAL [None]
  - MUSCLE INJURY [None]
  - NEUROPATHY [None]
  - OEDEMA PERIPHERAL [None]
  - THYROID DISORDER [None]
  - WEIGHT INCREASED [None]
